FAERS Safety Report 9340130 (Version 1)
Quarter: 2013Q2

REPORT INFORMATION
  Report Type: Spontaneous
  Country: US (occurrence: US)
  Receive Date: 20130610
  Receipt Date: 20130610
  Transmission Date: 20140414
  Serious: No
  Sender: FDA-Public Use
  Company Number: US-ASTELLAS-2013US004891

PATIENT
  Age: 80 Year
  Sex: Male
  Weight: 95 kg

DRUGS (4)
  1. XTANDI [Suspect]
     Indication: PROSTATE CANCER
     Dosage: 160 MG, UID/QD
     Route: 048
     Dates: start: 20130321, end: 20130421
  2. XTANDI [Suspect]
     Dosage: 160 MG, UID/QD
     Route: 048
     Dates: start: 20130427
  3. XGEVA [Concomitant]
     Indication: PROSTATE CANCER
     Dosage: 120 MG, ONCE EVERY FOUR WEEKS
     Route: 058
     Dates: start: 201103
  4. LUPRON [Concomitant]
     Indication: PROSTATE CANCER
     Dosage: 22.5 MG, ONCE EVERY 12 WEEKS
     Route: 030
     Dates: start: 20110921

REACTIONS (2)
  - Musculoskeletal stiffness [Recovered/Resolved]
  - Myalgia [Recovered/Resolved]
